FAERS Safety Report 22636028 (Version 1)
Quarter: 2023Q2

REPORT INFORMATION
  Report Type: Spontaneous
  Country: US (occurrence: None)
  Receive Date: 20230621
  Receipt Date: 20230621
  Transmission Date: 20230722
  Serious: No
  Sender: FDA-Public Use
  Company Number: None

PATIENT
  Sex: Male

DRUGS (1)
  1. H.P. ACTHAR [Suspect]
     Active Substance: CORTICOTROPIN
     Dosage: OTHER QUANTITY : OTHER;?OTHER FREQUENCY : OTHER;?
     Route: 030
     Dates: start: 202306

REACTIONS (1)
  - Infantile spasms [None]
